FAERS Safety Report 9335869 (Version 1)
Quarter: 2013Q2

REPORT INFORMATION
  Report Type: Spontaneous
  Country: US (occurrence: US)
  Receive Date: 20130606
  Receipt Date: 20130606
  Transmission Date: 20140414
  Serious: No
  Sender: FDA-Public Use
  Company Number: US-AMGEN-USASP2013017728

PATIENT
  Sex: Female

DRUGS (3)
  1. PROLIA [Suspect]
     Indication: OSTEOPOROSIS POSTMENOPAUSAL
     Dosage: UNK
     Dates: start: 201212
  2. RENVELA [Concomitant]
  3. ZEMPLAR [Concomitant]

REACTIONS (3)
  - Blood parathyroid hormone increased [Unknown]
  - Blood calcium abnormal [Unknown]
  - Blood phosphorus abnormal [Unknown]
